FAERS Safety Report 11639304 (Version 3)
Quarter: 2015Q4

REPORT INFORMATION
  Report Type: Spontaneous
  Country: JP (occurrence: JP)
  Receive Date: 20151019
  Receipt Date: 20151231
  Transmission Date: 20160304
  Serious: Yes (Hospitalization, Other)
  Sender: FDA-Public Use
  Company Number: JP-ROCHE-1646731

PATIENT
  Age: 84 Year
  Sex: Male

DRUGS (5)
  1. CYCLOPHOSPHAMIDE. [Suspect]
     Active Substance: CYCLOPHOSPHAMIDE
     Indication: DIFFUSE LARGE B-CELL LYMPHOMA
     Dosage: ON DAY 1-5 OF A 21 DAY SCHEDULE
     Route: 065
  2. DOXORUBICIN [Suspect]
     Active Substance: DOXORUBICIN
     Indication: DIFFUSE LARGE B-CELL LYMPHOMA
     Dosage: ON DAY 1-5 OF A 21 DAY SCHEDULE
     Route: 065
  3. PREDNISOLONE. [Suspect]
     Active Substance: PREDNISOLONE
     Indication: DIFFUSE LARGE B-CELL LYMPHOMA
     Dosage: ON DAY 1-5 OF A 21 DAY SCHEDULE
     Route: 065
  4. VINCRISTINE [Suspect]
     Active Substance: VINCRISTINE
     Indication: DIFFUSE LARGE B-CELL LYMPHOMA
     Dosage: ON DAY 1-5 OF A 21 DAY SCHEDULE
     Route: 065
  5. RITUXIMAB [Suspect]
     Active Substance: RITUXIMAB
     Indication: DIFFUSE LARGE B-CELL LYMPHOMA
     Dosage: ON DAY 1-5 OF A 21 DAY SCHEDULE
     Route: 042

REACTIONS (3)
  - Pneumonia bacterial [Recovered/Resolved]
  - Kaposi^s sarcoma [Recovered/Resolved]
  - Cytomegalovirus viraemia [Unknown]
